FAERS Safety Report 17825986 (Version 2)
Quarter: 2020Q2

REPORT INFORMATION
  Report Type: Spontaneous
  Country: FR (occurrence: FR)
  Receive Date: 20200526
  Receipt Date: 20200617
  Transmission Date: 20200714
  Serious: Yes (Disabling, Other)
  Sender: FDA-Public Use
  Company Number: FR-B.I. PHARMACEUTICALS,INC./RIDGEFIELD-2020-12-025331

PATIENT
  Age: 66 Year
  Sex: Male

DRUGS (4)
  1. SIFROL [Suspect]
     Active Substance: PRAMIPEXOLE
     Indication: PARKINSON^S DISEASE
     Dosage: DOSAGE BETWEEN 1.4 AND 2.1 MG
     Route: 065
     Dates: start: 200702, end: 201411
  2. SERTRALINE [Concomitant]
     Active Substance: SERTRALINE HYDROCHLORIDE
     Route: 065
     Dates: end: 201609
  3. SERTRALINE [Concomitant]
     Active Substance: SERTRALINE HYDROCHLORIDE
     Indication: DEPRESSION
     Route: 065
     Dates: start: 201609
  4. BENSERAZIDE, LEVODOPA [Suspect]
     Active Substance: BENSERAZIDE\LEVODOPA
     Indication: DOPAMINERGIC DRUG THERAPY
     Route: 065
     Dates: start: 201202

REACTIONS (9)
  - Libido increased [Recovered/Resolved]
  - Irritability [Recovered/Resolved]
  - Tension [Recovered/Resolved]
  - Hypersexuality [Recovered/Resolved]
  - Compulsive sexual behaviour [Recovered/Resolved]
  - Dependence [Recovered/Resolved]
  - Sexual activity increased [Recovered/Resolved]
  - Agitation [Recovered/Resolved]
  - Excessive masturbation [Recovered/Resolved]

NARRATIVE: CASE EVENT DATE: 201401
